FAERS Safety Report 21026814 (Version 1)
Quarter: 2022Q2

REPORT INFORMATION
  Report Type: Spontaneous
  Country: US (occurrence: None)
  Receive Date: 20220629
  Receipt Date: 20220629
  Transmission Date: 20220721
  Serious: No
  Sender: FDA-Public Use
  Company Number: None

PATIENT
  Age: 61 Year
  Sex: Female
  Weight: 90.26 kg

DRUGS (1)
  1. HUMIRA [Suspect]
     Active Substance: ADALIMUMAB
     Indication: Infective spondylitis
     Dosage: FREQUENCY : EVERY OTHER DAY;?
     Route: 058
     Dates: start: 202203

REACTIONS (3)
  - Malaise [None]
  - Fungal infection [None]
  - COVID-19 [None]
